FAERS Safety Report 23821414 (Version 1)
Quarter: 2024Q2

REPORT INFORMATION
  Report Type: Spontaneous
  Country: IT (occurrence: IT)
  Receive Date: 20240506
  Receipt Date: 20240506
  Transmission Date: 20240716
  Serious: Yes (Other)
  Sender: FDA-Public Use
  Company Number: IT-ROCHE-3548065

PATIENT
  Age: 72 Year
  Sex: Female

DRUGS (9)
  1. GEMCITABINE HYDROCHLORIDE [Suspect]
     Active Substance: GEMCITABINE HYDROCHLORIDE
     Indication: Follicular lymphoma stage IV
     Dosage: UNK, UNKNOWN
     Route: 065
     Dates: start: 202211
  2. VINCRISTINE [Suspect]
     Active Substance: VINCRISTINE
     Indication: Follicular lymphoma stage IV
     Dosage: UNK, UNKNOWN
     Route: 065
     Dates: start: 202101
  3. RITUXIMAB [Suspect]
     Active Substance: RITUXIMAB
     Indication: Follicular lymphoma stage IV
     Dosage: EVERY 2 MONTHS FOR 2 YEARS
     Route: 042
     Dates: start: 201703
  4. PREDNISONE [Suspect]
     Active Substance: PREDNISONE
     Indication: Follicular lymphoma stage IV
     Dosage: UNK, UNKNOWN
     Route: 065
     Dates: start: 202101
  5. CYCLOPHOSPHAMIDE [Suspect]
     Active Substance: CYCLOPHOSPHAMIDE
     Indication: Follicular lymphoma stage IV
     Dosage: UNK, UNKNOWN
     Route: 065
     Dates: start: 202101
  6. BENDAMUSTINE [Suspect]
     Active Substance: BENDAMUSTINE
     Indication: Follicular lymphoma stage IV
     Dosage: UNK UNK, UNKNOWN
     Route: 065
     Dates: start: 201703
  7. LENALIDOMIDE [Suspect]
     Active Substance: LENALIDOMIDE
     Indication: Follicular lymphoma stage IV
     Dosage: UNK, UNKNOWN
     Route: 065
     Dates: start: 202105
  8. DOXORUBICIN [Suspect]
     Active Substance: DOXORUBICIN
     Indication: Follicular lymphoma stage IV
     Dosage: UNK UNK, UNKNOWN
     Route: 065
  9. OXALIPLATIN [Suspect]
     Active Substance: OXALIPLATIN
     Indication: Follicular lymphoma stage IV
     Dosage: UNK UNK, UNKNOWN
     Route: 065
     Dates: start: 202211

REACTIONS (5)
  - Lymphatic duct injury [Unknown]
  - Follicular lymphoma [Unknown]
  - Chest pain [Unknown]
  - Troponin T increased [Unknown]
  - Off label use [Unknown]

NARRATIVE: CASE EVENT DATE: 20201001
